FAERS Safety Report 13856864 (Version 1)
Quarter: 2017Q3

REPORT INFORMATION
  Report Type: Spontaneous
  Country: US (occurrence: US)
  Receive Date: 20170810
  Receipt Date: 20170810
  Transmission Date: 20171127
  Serious: No
  Sender: FDA-Public Use
  Company Number: US-ROCHE-1177822

PATIENT
  Sex: Male

DRUGS (2)
  1. TAMIFLU [Suspect]
     Active Substance: OSELTAMIVIR PHOSPHATE
     Route: 065
     Dates: start: 20130107
  2. TAMIFLU [Suspect]
     Active Substance: OSELTAMIVIR PHOSPHATE
     Indication: INFLUENZA
     Route: 065
     Dates: start: 20130106

REACTIONS (5)
  - Cough [Recovering/Resolving]
  - Hyperhidrosis [Recovering/Resolving]
  - Heart rate decreased [Recovering/Resolving]
  - Cold sweat [Recovering/Resolving]
  - Blood pressure decreased [Recovering/Resolving]
